FAERS Safety Report 6012637-7 (Version None)
Quarter: 2008Q4

REPORT INFORMATION
  Report Type: 
  Country: None (occurrence: None)
  Receive Date: 20081218
  Receipt Date: 20081203
  Transmission Date: 20090506
  Serious: Yes (Other)
  Sender: FDA-Public Use
  Company Number: US-GENENTECH-273526

PATIENT

DRUGS (5)
  1. BEVACIZUMAB [Suspect]
     Indication: DRUG USE FOR UNKNOWN INDICATION
     Dosage: 5 MG/KG, Q2W
     Route: 042
     Dates: start: 20050922
  2. OXALIPLATIN [Concomitant]
     Indication: DRUG USE FOR UNKNOWN INDICATION
     Dosage: 85 MG/M2, Q14D
     Route: 042
     Dates: start: 20050922
  3. LEUCOVORIN CALCIUM [Concomitant]
     Indication: DRUG USE FOR UNKNOWN INDICATION
     Dosage: 400 MG/M2, Q14D
     Route: 042
     Dates: start: 20050922
  4. FLUOROURACIL [Concomitant]
     Indication: DRUG USE FOR UNKNOWN INDICATION
     Dosage: 400 MG/M2, Q14D
     Route: 040
     Dates: start: 20050922
  5. FLUOROURACIL [Concomitant]
     Dosage: 2400 MG/M2, UNK
     Route: 042
     Dates: start: 20050922

REACTIONS (1)
  - EXTERNAL EAR INFLAMMATION [None]
